FAERS Safety Report 9167908 (Version 1)
Quarter: 2013Q1

REPORT INFORMATION
  Report Type: Spontaneous
  Country: FR (occurrence: None)
  Receive Date: 20130304
  Receipt Date: 20130304
  Transmission Date: 20140127
  Serious: Yes (Hospitalization)
  Sender: FDA-Public Use
  Company Number: 0220654

PATIENT
  Age: 38 Year
  Sex: Female

DRUGS (5)
  1. TACHOSIL [Suspect]
     Indication: PANCREATECTOMY
     Dates: start: 20101126, end: 20101126
  2. LOVENOX (HEPARIN-FRACTION, SODIUM SALT) [Concomitant]
  3. PERFALGAN [Concomitant]
  4. MORPHINE [Concomitant]
  5. POLYIONIC (ALL OTHER THERAPEUTIC PRODUCTS) [Concomitant]

REACTIONS (4)
  - Impaired gastric emptying [None]
  - Procedural nausea [None]
  - Procedural vomiting [None]
  - Ascites [None]
